FAERS Safety Report 8451947 (Version 2)
Quarter: 2012Q4

REPORT INFORMATION
  Report Type: 
  Country: US (occurrence: US)
  Receive Date: 20120309
  Receipt Date: 20121204
  Transmission Date: 20130627
  Serious: Yes (Hospitalization)
  Sender: FDA-Public Use
  Company Number: US-BAYER-2012-022189

PATIENT
  Age: 47 Year
  Sex: Female
  Weight: 104.31 kg

DRUGS (12)
  1. YAZ [Suspect]
     Indication: PREMENSTRUAL SYNDROME
     Dosage: UNK
     Dates: start: 201001, end: 201110
  2. YAZ [Suspect]
     Indication: PREMENSTRUAL DYSPHORIC DISORDER
  3. BEYAZ [Suspect]
     Indication: CONTRACEPTION
     Dosage: UNK
     Dates: start: 201101, end: 201111
  4. BEYAZ [Suspect]
     Indication: PREMENSTRUAL DYSPHORIC DISORDER
  5. BEYAZ [Suspect]
     Indication: PREMENSTRUAL SYNDROME
  6. ZITHROMAX [Concomitant]
     Dosage: UNK
     Route: 048
     Dates: start: 201110
  7. AUGMENTIN [Concomitant]
     Dosage: UNK
     Route: 048
     Dates: start: 201110
  8. COUGH MEDICINE (NOS) [Concomitant]
     Indication: COUGH
     Dosage: UNK
     Route: 048
     Dates: start: 201110
  9. MUSCLE RELAXANTS [Concomitant]
     Indication: UPPER BACK PAIN
     Dosage: UNK
     Dates: start: 201110
  10. HYDROCODONE [Concomitant]
     Indication: PAIN NOS
     Dosage: UNK
     Route: 048
     Dates: start: 201110
  11. TYLENOL [Concomitant]
  12. ORAL CONTRACEPTIVE NOS [Concomitant]

REACTIONS (3)
  - Pulmonary embolism [None]
  - Injury [None]
  - Pain [None]
